FAERS Safety Report 12159594 (Version 2)
Quarter: 2016Q1

REPORT INFORMATION
  Report Type: Spontaneous
  Country: CA (occurrence: CA)
  Receive Date: 20160308
  Receipt Date: 20160310
  Transmission Date: 20160526
  Serious: Yes (Hospitalization, Other)
  Sender: FDA-Public Use
  Company Number: CA-ASTRAZENECA-2016SE22240

PATIENT
  Age: 21031 Day
  Sex: Male

DRUGS (9)
  1. LANTUS [Concomitant]
     Active Substance: INSULIN GLARGINE
     Dosage: 10 UNITS
  2. NORVASC [Concomitant]
     Active Substance: AMLODIPINE BESYLATE
  3. ASA [Concomitant]
     Active Substance: ASPIRIN
  4. XIGDUO XR [Suspect]
     Active Substance: DAPAGLIFLOZIN PROPANEDIOL\METFORMIN HYDROCHLORIDE
     Dosage: 5/1000 MG
     Route: 048
     Dates: start: 20160223
  5. MULTIVITAMIN [Concomitant]
     Active Substance: VITAMINS
  6. RAMIPRIL. [Concomitant]
     Active Substance: RAMIPRIL
  7. HYDROCHLOROTHIAZIDE. [Concomitant]
     Active Substance: HYDROCHLOROTHIAZIDE
     Indication: HYPERTENSION
  8. CRESTOR [Concomitant]
     Active Substance: ROSUVASTATIN CALCIUM
  9. BISOPROLOL [Concomitant]
     Active Substance: BISOPROLOL

REACTIONS (4)
  - Lactic acidosis [Unknown]
  - Left ventricular hypertrophy [Unknown]
  - Myocardial infarction [Unknown]
  - Hypertension [Unknown]

NARRATIVE: CASE EVENT DATE: 20160225
